FAERS Safety Report 9306362 (Version 1)
Quarter: 2013Q2

REPORT INFORMATION
  Report Type: Spontaneous
  Country: US (occurrence: US)
  Receive Date: 20130523
  Receipt Date: 20130523
  Transmission Date: 20140414
  Serious: No
  Sender: FDA-Public Use
  Company Number: US-PFIZER INC-2013157118

PATIENT
  Age: 52 Year
  Sex: Female

DRUGS (1)
  1. XELJANZ [Suspect]
     Indication: RHEUMATOID ARTHRITIS
     Dosage: 5 MG, 2X/DAY
     Route: 048
     Dates: start: 20130227

REACTIONS (6)
  - Aphthous stomatitis [Unknown]
  - Acne [Unknown]
  - Alopecia [Unknown]
  - Toothache [Unknown]
  - Fluid retention [Recovered/Resolved]
  - Blood pressure increased [Recovered/Resolved]
